FAERS Safety Report 9971290 (Version 2)
Quarter: 2014Q1

REPORT INFORMATION
  Report Type: Report from Study
  Country: US (occurrence: US)
  Receive Date: 20140306
  Receipt Date: 20140306
  Transmission Date: 20141002
  Serious: Yes (Hospitalization, Other)
  Sender: FDA-Public Use
  Company Number: US-ABBVIE-13P-163-1063169-00

PATIENT
  Age: 82 Year
  Sex: Female
  Weight: 69.01 kg

DRUGS (9)
  1. HUMIRA [Suspect]
     Indication: CROHN^S DISEASE
     Dates: start: 20121025, end: 20130425
  2. LOMOTIL [Concomitant]
     Indication: DIARRHOEA
  3. LEVOXYL [Concomitant]
     Indication: HYPOTHYROIDISM
  4. NEXIUM [Concomitant]
     Indication: HIATUS HERNIA
  5. NEXIUM [Concomitant]
     Indication: DYSPEPSIA
  6. DIOVAN D [Concomitant]
     Indication: HYPERTENSION
     Dosage: 160/12.5 MG
  7. JANUVIA [Concomitant]
     Indication: DIABETES MELLITUS
  8. COLON HEALTH PROBIOTIC [Concomitant]
     Indication: PRODUCT USED FOR UNKNOWN INDICATION
  9. APRISO [Concomitant]
     Indication: CROHN^S DISEASE
     Dosage: 4 TABLETS DAILY (1.5 MG)

REACTIONS (4)
  - Drug effect incomplete [Recovering/Resolving]
  - Osteopenia [Recovering/Resolving]
  - Impaired healing [Recovering/Resolving]
  - Dysplasia [Recovering/Resolving]
